FAERS Safety Report 7466070-1 (Version None)
Quarter: 2011Q2

REPORT INFORMATION
  Report Type: 
  Country: None (occurrence: None)
  Receive Date: 20110509
  Receipt Date: 20100616
  Transmission Date: 20111010
  Serious: Yes (Other)
  Sender: FDA-Public Use
  Company Number: US-ALEXION-A201000697

PATIENT
  Sex: Male

DRUGS (2)
  1. PREDNISONE [Suspect]
     Dosage: 20 MG, QD
     Route: 048
  2. SOLIRIS [Suspect]
     Indication: PAROXYSMAL NOCTURNAL HAEMOGLOBINURIA
     Dosage: UNK
     Route: 042

REACTIONS (3)
  - VERTIGO [None]
  - DIZZINESS [None]
  - BLOOD GLUCOSE FLUCTUATION [None]
